FAERS Safety Report 5371153-6 (Version None)
Quarter: 2007Q2

REPORT INFORMATION
  Report Type: 
  Country: None (occurrence: None)
  Receive Date: 20070615
  Receipt Date: 20070312
  Transmission Date: 20071010
  Serious: Yes (Other)
  Sender: FDA-Public Use
  Company Number: 200711228US

PATIENT
  Age: 48 Year
  Sex: Female

DRUGS (20)
  1. LANTUS [Suspect]
     Indication: DIABETES MELLITUS NON-INSULIN-DEPENDENT
     Dosage: 50 U HS
     Dates: end: 20070221
  2. LANTUS [Suspect]
     Indication: DIABETES MELLITUS NON-INSULIN-DEPENDENT
     Dosage: 25 U HS
     Dates: start: 20070222
  3. OPTICLIK [Suspect]
     Indication: DIABETES MELLITUS NON-INSULIN-DEPENDENT
  4. FLUTICASONE PROPIONATE, SALMETEROL XINAFOATE [Concomitant]
  5. BACLOFEN [Concomitant]
  6. FENTANYL [Concomitant]
  7. LOSARTAN POTASSIUM AND HYDROCHLOROTHIAZIDE [Concomitant]
  8. LORAZEPAM [Concomitant]
  9. METFORMIN HCL [Concomitant]
  10. GABAPENTIN [Concomitant]
  11. NABUMETONE [Concomitant]
  12. INSULIN ASPART [Concomitant]
  13. SENNA ALEXANDRINA [Concomitant]
  14. FAMOTIDINE [Concomitant]
  15. PANTOPRAZOLE SODIUM [Concomitant]
  16. MIRTAZAPINE [Concomitant]
  17. MONTELUKAST SODIUM [Concomitant]
  18. LEVOTHYROXINE SODIUM [Concomitant]
  19. TRAZODONE HYDROCHLORIDE [Concomitant]
  20. CETIRIZINE HYDROCHLORIDE [Concomitant]

REACTIONS (6)
  - BLOOD GLUCOSE DECREASED [None]
  - BLOOD GLUCOSE INCREASED [None]
  - DRUG INEFFECTIVE [None]
  - HYPERHIDROSIS [None]
  - HYPOGLYCAEMIA [None]
  - NERVOUSNESS [None]
